FAERS Safety Report 9660486 (Version 2)
Quarter: 2013Q4

REPORT INFORMATION
  Report Type: Spontaneous
  Country: US (occurrence: US)
  Receive Date: 20131031
  Receipt Date: 20131104
  Transmission Date: 20140711
  Serious: No
  Sender: FDA-Public Use
  Company Number: US-PFIZER INC-2013308886

PATIENT
  Age: 46 Year
  Sex: Female

DRUGS (9)
  1. LIPITOR [Suspect]
     Dosage: UNK
  2. CIPROFLOXACIN [Suspect]
     Dosage: UNK
  3. METFORMIN HCL [Suspect]
     Dosage: UNK
  4. SERTRALINE HCL [Suspect]
     Dosage: UNK
  5. TETRACYCLINE HCL [Suspect]
     Dosage: UNK
  6. TRAMADOL HCL [Suspect]
     Dosage: UNK
  7. ZOFRAN [Suspect]
     Dosage: UNK
  8. CYMBALTA [Suspect]
     Dosage: UNK
  9. LEXAPRO [Suspect]
     Dosage: UNK

REACTIONS (1)
  - Drug hypersensitivity [Unknown]
